FAERS Safety Report 9835783 (Version 2)
Quarter: 2014Q1

REPORT INFORMATION
  Report Type: Spontaneous
  Country: US (occurrence: US)
  Receive Date: 20140122
  Receipt Date: 20140217
  Transmission Date: 20141002
  Serious: Yes (Death, Other)
  Sender: FDA-Public Use
  Company Number: US-MALLINCKRODT-T201400486

PATIENT
  Age: 36 Year
  Sex: Male
  Weight: 105.21 kg

DRUGS (4)
  1. FENTANYL CITRATE [Suspect]
     Indication: PRODUCT USED FOR UNKNOWN INDICATION
     Route: 065
  2. HYDROCODONE/ACETAMINOPHEN [Suspect]
     Indication: PRODUCT USED FOR UNKNOWN INDICATION
     Route: 065
  3. PROMETHAZINE [Suspect]
     Indication: PRODUCT USED FOR UNKNOWN INDICATION
     Dosage: UNK
     Route: 065
  4. MIRTAZAPINE [Suspect]
     Indication: PRODUCT USED FOR UNKNOWN INDICATION
     Dosage: UNK
     Route: 065

REACTIONS (9)
  - Drug abuse [Fatal]
  - Overdose [Fatal]
  - Pulmonary oedema [Fatal]
  - Cardiomegaly [Unknown]
  - Left ventricular hypertrophy [Unknown]
  - Coronary artery stenosis [Unknown]
  - Pneumonia [Unknown]
  - Contusion [Unknown]
  - Excoriation [Unknown]
